FAERS Safety Report 14039459 (Version 1)
Quarter: 2017Q4

REPORT INFORMATION
  Report Type: Spontaneous
  Country: US (occurrence: US)
  Receive Date: 20171004
  Receipt Date: 20171004
  Transmission Date: 20180321
  Serious: No
  Sender: FDA-Public Use
  Company Number: US-BAYER-2017-176508

PATIENT
  Age: 53 Year
  Sex: Female

DRUGS (1)
  1. ESTRADIOL HEMIHYDRATE + LEVONORGESTREL [Suspect]
     Active Substance: ESTRADIOL HEMIHYDRATE\LEVONORGESTREL
     Dosage: 0.1 MG, UNK
     Route: 062
     Dates: start: 20170817

REACTIONS (5)
  - Application site infection [None]
  - Application site scab [Not Recovered/Not Resolved]
  - Product use issue [None]
  - Wrong technique in product usage process [None]
  - Product adhesion issue [None]

NARRATIVE: CASE EVENT DATE: 2017
